FAERS Safety Report 14034881 (Version 2)
Quarter: 2017Q4

REPORT INFORMATION
  Report Type: Spontaneous
  Country: JP (occurrence: JP)
  Receive Date: 20171003
  Receipt Date: 20171030
  Transmission Date: 20180321
  Serious: Yes (Death, Other)
  Sender: FDA-Public Use
  Company Number: JP-GLAXOSMITHKLINE-JP2017JPN142255

PATIENT
  Age: 90 Year
  Sex: Female

DRUGS (1)
  1. SAMTIREL [Suspect]
     Active Substance: ATOVAQUONE
     Indication: ANTIFUNGAL PROPHYLAXIS
     Route: 050

REACTIONS (3)
  - Pneumonia aspiration [Fatal]
  - Diarrhoea [Unknown]
  - Incorrect route of drug administration [Unknown]
